FAERS Safety Report 7593562-7 (Version None)
Quarter: 2011Q2

REPORT INFORMATION
  Report Type: 
  Country: None (occurrence: None)
  Receive Date: 20110609
  Receipt Date: 20110408
  Transmission Date: 20111010
  Serious: No
  Sender: FDA-Public Use
  Company Number: TH-2011-00076

PATIENT
  Age: 58 Year
  Sex: Male

DRUGS (1)
  1. EGRIFTA [Suspect]
     Indication: LIPODYSTROPHY ACQUIRED
     Dates: end: 20110301

REACTIONS (4)
  - NERVOUSNESS [None]
  - MUSCULOSKELETAL CHEST PAIN [None]
  - ABDOMINAL DISCOMFORT [None]
  - SINUSITIS [None]
